FAERS Safety Report 6079691-8 (Version None)
Quarter: 2009Q1

REPORT INFORMATION
  Report Type: 
  Country: None (occurrence: None)
  Receive Date: 20090217
  Receipt Date: 20090212
  Transmission Date: 20090719
  Serious: Yes (Death)
  Sender: FDA-Public Use
  Company Number: DE-BRISTOL-MYERS SQUIBB COMPANY-14422356

PATIENT
  Age: 79 Year
  Weight: 90 kg

DRUGS (1)
  1. SPRYCEL [Suspect]
     Indication: CHRONIC MYELOID LEUKAEMIA
     Dosage: 70 MG

REACTIONS (3)
  - CARDIAC FAILURE [None]
  - DRUG TOXICITY [None]
  - PNEUMONIA [None]
